FAERS Safety Report 13308808 (Version 1)
Quarter: 2017Q1

REPORT INFORMATION
  Report Type: Report from Study
  Country: US (occurrence: US)
  Receive Date: 20170308
  Receipt Date: 20170308
  Transmission Date: 20170428
  Serious: Yes (Other)
  Sender: FDA-Public Use
  Company Number: US-GILEAD-2017-0259724

PATIENT
  Age: 60 Year
  Sex: Female

DRUGS (1)
  1. LEDIPASVIR/SOFOSBUVIR [Suspect]
     Active Substance: LEDIPASVIR\SOFOSBUVIR
     Indication: CHRONIC HEPATITIS C
     Dosage: 1 DF, UNK
     Route: 048
     Dates: start: 20170217

REACTIONS (7)
  - Diarrhoea [Unknown]
  - Haemoptysis [Unknown]
  - Abdominal pain upper [Unknown]
  - Haematochezia [Unknown]
  - Hypersomnia [Unknown]
  - Cough [Unknown]
  - Balance disorder [Unknown]

NARRATIVE: CASE EVENT DATE: 2017
